FAERS Safety Report 8316616-6 (Version None)
Quarter: 2012Q2

REPORT INFORMATION
  Report Type: 
  Country: None (occurrence: None)
  Receive Date: 20120427
  Receipt Date: 20120424
  Transmission Date: 20120825
  Serious: Yes (Death, Other)
  Sender: FDA-Public Use
  Company Number: PHHY2012JP025085

PATIENT
  Sex: Male

DRUGS (13)
  1. EXELON [Suspect]
     Dosage: 9 MG, DAILY
     Route: 062
     Dates: start: 20110905
  2. SERMION [Concomitant]
     Indication: CEREBRAL INFARCTION
     Dosage: 15 MG, UNK
     Route: 048
     Dates: start: 20120216, end: 20120225
  3. NORVASC [Concomitant]
     Indication: HYPERTENSION
     Dosage: 5 MG, UNK
     Route: 048
     Dates: start: 20120216, end: 20120225
  4. DIGOXIN [Concomitant]
     Indication: CARDIAC FAILURE
     Dosage: 0.25 MG, UNK
     Route: 048
     Dates: start: 20120216, end: 20120225
  5. BUFFERIN [Concomitant]
     Dosage: 1 DF, UNK
     Route: 048
  6. EXELON [Suspect]
     Indication: DEMENTIA ALZHEIMER'S TYPE
     Dosage: 4.5 MG, DAILY
     Route: 062
     Dates: start: 20110805
  7. EXELON [Suspect]
     Dosage: 18 MG, DAILY
     Route: 062
     Dates: start: 20111107, end: 20120225
  8. NIVADIL [Concomitant]
     Dosage: 2 DF, UNK
     Route: 048
  9. ISOSORBIDE DINITRATE [Concomitant]
     Indication: ANGINA PECTORIS
     Dosage: 40 MG, UNK
     Route: 048
     Dates: start: 20120216, end: 20120225
  10. AMARYL [Concomitant]
     Dosage: 1 MG, UNK
     Route: 048
  11. EXELON [Suspect]
     Dosage: 13.5 MG, DAILY
     Route: 062
     Dates: start: 20111003
  12. DIGOXIN [Concomitant]
     Dosage: 1 DF, UNK
     Route: 048
  13. ASPIRIN [Concomitant]
     Indication: ANGINA PECTORIS
     Dosage: 100 MG, UNK
     Dates: start: 20120216, end: 20120225

REACTIONS (10)
  - MARASMUS [None]
  - CIRCULATORY COLLAPSE [None]
  - BLOOD ALKALINE PHOSPHATASE INCREASED [None]
  - BLOOD POTASSIUM INCREASED [None]
  - BLOOD LACTATE DEHYDROGENASE INCREASED [None]
  - ASPARTATE AMINOTRANSFERASE INCREASED [None]
  - BLOOD CREATININE INCREASED [None]
  - CEREBRAL HAEMORRHAGE [None]
  - PNEUMONIA [None]
  - ACUTE RESPIRATORY FAILURE [None]
